FAERS Safety Report 22139997 (Version 4)
Quarter: 2025Q3

REPORT INFORMATION
  Report Type: Spontaneous
  Country: VE (occurrence: VE)
  Receive Date: 20230327
  Receipt Date: 20250818
  Transmission Date: 20251021
  Serious: Yes (Other)
  Sender: TAKEDA
  Company Number: VE-TAKEDA-2023TUS030458

PATIENT
  Sex: Male

DRUGS (1)
  1. ICLUSIG [Suspect]
     Active Substance: PONATINIB HYDROCHLORIDE
     Indication: Chronic myeloid leukaemia

REACTIONS (7)
  - Chronic myeloid leukaemia [Unknown]
  - Haematotoxicity [Unknown]
  - Urinary tract obstruction [Unknown]
  - Therapy non-responder [Unknown]
  - Prostatic mass [Unknown]
  - Pyrexia [Unknown]
  - Chills [Unknown]
